FAERS Safety Report 21947433 (Version 1)
Quarter: 2023Q1

REPORT INFORMATION
  Report Type: Report from Study
  Country: US (occurrence: US)
  Receive Date: 20230202
  Receipt Date: 20230202
  Transmission Date: 20230417
  Serious: Yes (Hospitalization, Other)
  Sender: FDA-Public Use
  Company Number: US-ACADIA PHARMACEUTICALS INC.-ACA-2023-PIM-000128

PATIENT
  Age: 84 Year
  Sex: Male

DRUGS (24)
  1. NUPLAZID [Suspect]
     Active Substance: PIMAVANSERIN TARTRATE
     Indication: Parkinson^s disease
     Dosage: 10 MILLIGRAM, QD
     Route: 048
     Dates: start: 202210
  2. NUPLAZID [Suspect]
     Active Substance: PIMAVANSERIN TARTRATE
     Indication: Hallucination
  3. PREDNISONE [Concomitant]
     Active Substance: PREDNISONE
  4. INBRIJA [Concomitant]
     Active Substance: LEVODOPA
  5. ASPIRIN [Concomitant]
     Active Substance: ASPIRIN
  6. DILTIAZEM [Concomitant]
     Active Substance: DILTIAZEM
  7. ACETAMINOPHEN [Concomitant]
     Active Substance: ACETAMINOPHEN
  8. AZELASTINE [Concomitant]
     Active Substance: AZELASTINE
  9. COLACE [Concomitant]
     Active Substance: DOCUSATE SODIUM
  10. FEXOFENADINE [Concomitant]
     Active Substance: FEXOFENADINE HYDROCHLORIDE
  11. FLUTICASONE [Concomitant]
     Active Substance: FLUTICASONE
  12. GLUCOSAMINE [Concomitant]
     Active Substance: GLUCOSAMINE
  13. MAGNESIUM [Concomitant]
     Active Substance: MAGNESIUM
  14. MUCINEX [Concomitant]
     Active Substance: GUAIFENESIN
  15. MYOBLOC [Concomitant]
     Active Substance: RIMABOTULINUMTOXINB
  16. OMEPRAZOLE [Concomitant]
     Active Substance: OMEPRAZOLE
  17. MINERALS\VITAMINS [Concomitant]
     Active Substance: MINERALS\VITAMINS
  18. VITAMIN D NOS [Concomitant]
     Active Substance: VITAMIN D NOS
  19. GABAPENTIN [Concomitant]
     Active Substance: GABAPENTIN
  20. CARBIDOPA LEVODOPA [Concomitant]
     Active Substance: CARBIDOPA\LEVODOPA
  21. DULOXETINE [Concomitant]
     Active Substance: DULOXETINE
  22. DONEPEZIL [Concomitant]
     Active Substance: DONEPEZIL
  23. MEMANTINE [Concomitant]
     Active Substance: MEMANTINE
  24. BELBUCA [Concomitant]
     Active Substance: BUPRENORPHINE HYDROCHLORIDE

REACTIONS (1)
  - COVID-19 pneumonia [Not Recovered/Not Resolved]

NARRATIVE: CASE EVENT DATE: 20230104
